FAERS Safety Report 7759623-4 (Version None)
Quarter: 2011Q3

REPORT INFORMATION
  Report Type: 
  Country: None (occurrence: None)
  Receive Date: 20110919
  Receipt Date: 20110912
  Transmission Date: 20111222
  Serious: Yes (Hospitalization)
  Sender: FDA-Public Use
  Company Number: FR-ASTRAZENECA-2003CG01723

PATIENT
  Age: 78 Year
  Sex: Male

DRUGS (9)
  1. OMEPRAZOLE [Suspect]
     Indication: GASTRIC ULCER
     Route: 048
     Dates: start: 20020101
  2. SURBRONC [Concomitant]
     Route: 048
  3. VENTOLIN [Concomitant]
     Route: 055
  4. SYMBICORT [Concomitant]
     Route: 055
  5. TANAKAN [Concomitant]
     Route: 048
  6. OXEOL [Concomitant]
     Route: 055
  7. THEOSTAT  300 [Concomitant]
     Route: 048
  8. EUPHYTOSE [Concomitant]
     Route: 048
  9. BIOSTIM [Concomitant]
     Route: 048

REACTIONS (3)
  - RIB FRACTURE [None]
  - HYPONATRAEMIA [None]
  - CONFUSIONAL STATE [None]
